FAERS Safety Report 12851598 (Version 1)
Quarter: 2016Q4

REPORT INFORMATION
  Report Type: Spontaneous
  Country: US (occurrence: US)
  Receive Date: 20161014
  Receipt Date: 20161014
  Transmission Date: 20170207
  Serious: Yes (Other)
  Sender: FDA-Public Use
  Company Number: None

PATIENT
  Age: 30 Year
  Sex: Female
  Weight: 83.25 kg

DRUGS (8)
  1. DEXTROAMPHETAMI- NE SACCHARATE, AM [Suspect]
     Active Substance: DEXTROAMPHETAMINE SACCHARATE
     Indication: POST-TRAUMATIC STRESS DISORDER
     Dosage: ?          QUANTITY:1 TABLET(S);?
     Route: 048
     Dates: start: 20131031, end: 20161014
  2. ADDERALL/DEXEDRINE [Concomitant]
  3. LEXAPRO [Concomitant]
     Active Substance: ESCITALOPRAM OXALATE
  4. DEXTROAMPHETAMI- NE SACCHARATE, AM [Suspect]
     Active Substance: DEXTROAMPHETAMINE SACCHARATE
     Indication: DEPRESSION
     Dosage: ?          QUANTITY:1 TABLET(S);?
     Route: 048
     Dates: start: 20131031, end: 20161014
  5. SUBOXONE [Concomitant]
     Active Substance: BUPRENORPHINE HYDROCHLORIDE\NALOXONE HYDROCHLORIDE
  6. DEXTROAMPHETAMI- NE SACCHARATE, AM [Suspect]
     Active Substance: DEXTROAMPHETAMINE SACCHARATE
     Indication: FATIGUE
     Dosage: ?          QUANTITY:1 TABLET(S);?
     Route: 048
     Dates: start: 20131031, end: 20161014
  7. DEXTROAMPHETAMI- NE SACCHARATE, AM [Suspect]
     Active Substance: DEXTROAMPHETAMINE SACCHARATE
     Indication: PRODUCT USED FOR UNKNOWN INDICATION
     Dosage: ?          QUANTITY:1 TABLET(S);?
     Route: 048
     Dates: start: 20131031, end: 20161014
  8. NATURE MADE PRENATAL GUMMY DAILY VITAMIN [Concomitant]

REACTIONS (7)
  - Malaise [None]
  - Palpitations [None]
  - Dyspnoea [None]
  - Fatigue [None]
  - Diarrhoea [None]
  - Nausea [None]
  - Anxiety [None]

NARRATIVE: CASE EVENT DATE: 20161013
